FAERS Safety Report 6892789-7 (Version None)
Quarter: 2010Q3

REPORT INFORMATION
  Report Type: 
  Country: None (occurrence: None)
  Receive Date: 20100731
  Receipt Date: 20080922
  Transmission Date: 20110219
  Serious: No
  Sender: FDA-Public Use
  Company Number: US-PFIZER INC-2008080043

PATIENT
  Sex: Female
  Weight: 63.181 kg

DRUGS (6)
  1. AMLODIPINE [Suspect]
     Dates: start: 20080301
  2. LIPITOR [Concomitant]
  3. OMEPRAZOLE [Concomitant]
  4. SIMVASTATIN [Concomitant]
  5. ACETYLSALICYLIC ACID SRT [Concomitant]
  6. LASIX [Concomitant]

REACTIONS (7)
  - LIP DRY [None]
  - LIP EXFOLIATION [None]
  - OEDEMA PERIPHERAL [None]
  - PRURITUS [None]
  - RASH [None]
  - SCRATCH [None]
  - SWOLLEN TONGUE [None]
